FAERS Safety Report 8800778 (Version 6)
Quarter: 2014Q1

REPORT INFORMATION
  Report Type: Report from Study
  Country: US (occurrence: US)
  Receive Date: 20120921
  Receipt Date: 20140306
  Transmission Date: 20141002
  Serious: Yes (Hospitalization, Other)
  Sender: FDA-Public Use
  Company Number: US-BRISTOL-MYERS SQUIBB COMPANY-16954943

PATIENT
  Age: 30 Year
  Sex: Male
  Weight: 131.5 kg

DRUGS (1)
  1. IPILIMUMAB [Suspect]
     Indication: MALIGNANT MELANOMA
     Dosage: RECENT DOSE 13AUG12. TOTAL 1320MG
     Route: 042
     Dates: start: 20120813

REACTIONS (5)
  - Embolism [Recovered/Resolved]
  - Skin infection [Recovered/Resolved]
  - Headache [Recovered/Resolved]
  - Influenza like illness [Recovered/Resolved]
  - Chills [Unknown]
